FAERS Safety Report 19170863 (Version 5)
Quarter: 2021Q2

REPORT INFORMATION
  Report Type: Spontaneous
  Country: US (occurrence: US)
  Receive Date: 20210423
  Receipt Date: 20210504
  Transmission Date: 20210717
  Serious: Yes (Other)
  Sender: FDA-Public Use
  Company Number: US-ELI_LILLY_AND_COMPANY-US202104009361

PATIENT

DRUGS (1)
  1. TRULICITY [Suspect]
     Active Substance: DULAGLUTIDE
     Indication: PRODUCT USED FOR UNKNOWN INDICATION
     Dosage: UNK UNK, UNKNOWN
     Route: 065

REACTIONS (16)
  - Neoplasm malignant [Unknown]
  - Illness [Unknown]
  - Angina pectoris [Unknown]
  - Constipation [Unknown]
  - Vomiting [Unknown]
  - Weight decreased [Unknown]
  - Tremor [Unknown]
  - Back pain [Unknown]
  - Decreased appetite [Unknown]
  - Abdominal discomfort [Unknown]
  - Thyroid disorder [Unknown]
  - Abdominal pain upper [Not Recovered/Not Resolved]
  - Multi-organ disorder [Unknown]
  - Headache [Unknown]
  - Ageusia [Unknown]
  - Diarrhoea [Unknown]
